FAERS Safety Report 8955850 (Version 1)
Quarter: 2012Q4

REPORT INFORMATION
  Report Type: 
  Country: US (occurrence: US)
  Receive Date: 20121210
  Receipt Date: 20121210
  Transmission Date: 20130627
  Serious: Yes (Disabling, Other)
  Sender: FDA-Public Use
  Company Number: US-PFIZER INC-2012305543

PATIENT
  Age: 69 Year
  Sex: Female
  Weight: 78.46 kg

DRUGS (3)
  1. PREMPRO [Suspect]
     Indication: HORMONE THERAPY
     Dosage: 0.625 / 2.5 mg, daily
  2. ATENOLOL W/CHLORTALIDONE [Concomitant]
     Indication: BLOOD PRESSURE HIGH
     Dosage: 50 / 25 mg,  daily
  3. AMLODIPINE [Concomitant]
     Indication: BLOOD PRESSURE HIGH
     Dosage: UNK, daily

REACTIONS (1)
  - Rotator cuff syndrome [Unknown]
